FAERS Safety Report 4803467-X (Version None)
Quarter: 2005Q4

REPORT INFORMATION
  Report Type: 
  Country: None (occurrence: None)
  Receive Date: 20051014
  Receipt Date: 20051005
  Transmission Date: 20060501
  Serious: Yes (Hospitalization, Other)
  Sender: FDA-Public Use
  Company Number: 2005099163

PATIENT
  Age: 47 Year
  Sex: Male

DRUGS (5)
  1. LIPITOR [Suspect]
     Indication: BLOOD CHOLESTEROL INCREASED
     Dosage: 10 MG (10 MG, 1 IN 1 D), ORAL
     Route: 048
  2. NEURONTIN [Concomitant]
  3. PHENOBARBITAL TAB [Concomitant]
  4. ZESTRIL [Concomitant]
  5. INSULIN [Concomitant]

REACTIONS (3)
  - HAEMATOCHEZIA [None]
  - HAEMOPTYSIS [None]
  - HEPATIC CIRRHOSIS [None]
